FAERS Safety Report 23598076 (Version 1)
Quarter: 2024Q1

REPORT INFORMATION
  Report Type: Spontaneous
  Country: US (occurrence: US)
  Receive Date: 20240305
  Receipt Date: 20240305
  Transmission Date: 20240409
  Serious: No
  Sender: FDA-Public Use
  Company Number: US-BRISTOL-MYERS SQUIBB COMPANY-2024-034610

PATIENT
  Age: 85 Year
  Sex: Male
  Weight: 74.84 kg

DRUGS (1)
  1. REVLIMID [Suspect]
     Active Substance: LENALIDOMIDE
     Indication: Hypercalcaemia
     Dosage: 2WKSON,1WKOFF
     Route: 048

REACTIONS (3)
  - Blood phosphorus abnormal [Recovering/Resolving]
  - Intentional dose omission [Unknown]
  - Off label use [Unknown]
